FAERS Safety Report 7477743-9 (Version None)
Quarter: 2011Q2

REPORT INFORMATION
  Report Type: 
  Country: None (occurrence: None)
  Receive Date: 20110511
  Receipt Date: 20110511
  Transmission Date: 20111010
  Serious: Yes (Hospitalization)
  Sender: FDA-Public Use
  Company Number: None

PATIENT
  Age: 55 Year
  Sex: Male
  Weight: 104.5 kg

DRUGS (2)
  1. SIMVASTATIN [Suspect]
     Indication: HYPERLIPIDAEMIA
     Dosage: 80 MG EVERY DAY PO
     Route: 048
     Dates: start: 20101110, end: 20101228
  2. DANAZOL [Suspect]
     Indication: HEREDITARY ANGIOEDEMA
     Dosage: 400 MG BID PO
     Route: 048
     Dates: start: 20031110, end: 20101228

REACTIONS (1)
  - MYOSITIS [None]
